FAERS Safety Report 5853713-9 (Version None)
Quarter: 2008Q3

REPORT INFORMATION
  Report Type: 
  Country: None (occurrence: None)
  Receive Date: 20080822
  Receipt Date: 20080819
  Transmission Date: 20090109
  Serious: Yes (Hospitalization, Other)
  Sender: FDA-Public Use
  Company Number: PHNU2008DE01125

PATIENT
  Sex: Female
  Weight: 77 kg

DRUGS (12)
  1. RASILEZ [Suspect]
     Indication: HYPERTENSION
     Dosage: 1 DF, QD
     Route: 048
     Dates: start: 20071207, end: 20071220
  2. ATACAND [Concomitant]
     Dosage: 1 DF, BID
     Dates: start: 20070101
  3. CARMEN [Concomitant]
     Dosage: 0.5 DF, BID
  4. DELIX [Concomitant]
     Indication: HYPERTENSION
     Dosage: 1 DF, BID
     Dates: end: 20071220
  5. TOREM [Concomitant]
     Indication: HYPERTENSION
     Dosage: 15-30 MG/DAY
  6. SODIUM BICARBONATE [Concomitant]
     Dosage: 1 DF, BID
  7. SIMVASTATIN [Concomitant]
     Dosage: 1 DF, QD
  8. CYNT ^BEIERSDORF^ [Concomitant]
     Dosage: 1 DF, BID
  9. NEBILET [Concomitant]
     Dosage: 1 DF, BID
  10. EBRANTIL [Concomitant]
     Dosage: 90 MG, TID
  11. PANTOZOL [Concomitant]
     Dosage: 1 DF, QD
  12. LONOLOX [Concomitant]
     Dosage: UNK
     Dates: start: 20071217

REACTIONS (17)
  - ACUTE PRERENAL FAILURE [None]
  - BLOOD ALBUMIN DECREASED [None]
  - BLOOD CALCIUM DECREASED [None]
  - BLOOD CREATININE INCREASED [None]
  - BLOOD POTASSIUM DECREASED [None]
  - BLOOD UREA INCREASED [None]
  - CARDIOVASCULAR INSUFFICIENCY [None]
  - DIALYSIS [None]
  - HAEMOGLOBIN DECREASED [None]
  - HYPERTENSION [None]
  - HYPOTENSION [None]
  - PROTEIN TOTAL DECREASED [None]
  - PROTEIN URINE PRESENT [None]
  - RENAL FAILURE CHRONIC [None]
  - RENAL IMPAIRMENT [None]
  - URINARY TRACT INFECTION [None]
  - URINE OUTPUT INCREASED [None]
